FAERS Safety Report 25804543 (Version 2)
Quarter: 2025Q4

REPORT INFORMATION
  Report Type: Spontaneous
  Country: RU (occurrence: RU)
  Receive Date: 20250915
  Receipt Date: 20251008
  Transmission Date: 20260118
  Serious: Yes (Other)
  Sender: NOVARTIS
  Company Number: RU-002147023-NVSC2025RU127545

PATIENT
  Sex: Male

DRUGS (3)
  1. ALPELISIB [Suspect]
     Active Substance: ALPELISIB
     Indication: PIK3CA related overgrowth spectrum
     Dosage: 150 MG
     Route: 065
  2. ALPELISIB [Suspect]
     Active Substance: ALPELISIB
     Dosage: 50 MG
     Route: 048
     Dates: start: 202309
  3. ALPELISIB [Suspect]
     Active Substance: ALPELISIB
     Dosage: 125 MG
     Route: 065

REACTIONS (2)
  - Off label use [Unknown]
  - Mucosal inflammation [Not Recovered/Not Resolved]
